FAERS Safety Report 10237236 (Version 1)
Quarter: 2014Q2

REPORT INFORMATION
  Report Type: Spontaneous
  Country: JP (occurrence: JP)
  Receive Date: 20140613
  Receipt Date: 20140613
  Transmission Date: 20141212
  Serious: Yes (Hospitalization)
  Sender: FDA-Public Use
  Company Number: JP-MERCK-1406JPN007171

PATIENT
  Sex: Male

DRUGS (3)
  1. GLACTIV [Suspect]
     Indication: TYPE 2 DIABETES MELLITUS
     Dosage: UNK
     Route: 048
  2. CILOSTAZOL [Concomitant]
  3. METFORMIN HYDROCHLORIDE [Concomitant]

REACTIONS (4)
  - Pelvic fracture [Unknown]
  - Shock haemorrhagic [Unknown]
  - Craniocerebral injury [Unknown]
  - Altered state of consciousness [Unknown]
